FAERS Safety Report 8416795-6 (Version None)
Quarter: 2012Q2

REPORT INFORMATION
  Report Type: 
  Country: None (occurrence: None)
  Receive Date: 20120606
  Receipt Date: 20120531
  Transmission Date: 20120825
  Serious: Yes (Hospitalization, Disabling, Other)
  Sender: FDA-Public Use
  Company Number: US-MERCK-1201USA00333

PATIENT
  Age: 76 Year
  Sex: Female

DRUGS (7)
  1. MULTI-VITAMINS [Concomitant]
     Route: 065
  2. FOSAMAX PLUS D [Suspect]
     Indication: BONE LOSS
     Route: 048
     Dates: start: 20060430, end: 20091109
  3. FOSAMAX [Suspect]
     Indication: BONE LOSS
     Route: 048
     Dates: start: 20010122, end: 20090511
  4. VITAMIN D (UNSPECIFIED) [Concomitant]
     Route: 065
  5. FOSAMAX [Suspect]
     Route: 048
     Dates: start: 20091109, end: 20110215
  6. CALCIUM (UNSPECIFIED) [Concomitant]
     Route: 065
  7. FOSAMAX [Suspect]
     Indication: OSTEOPENIA
     Route: 048
     Dates: start: 20010122, end: 20090511

REACTIONS (9)
  - FEMUR FRACTURE [None]
  - INTERVERTEBRAL DISC DISORDER [None]
  - BLADDER DISORDER [None]
  - OSTEOARTHRITIS [None]
  - TONSILLAR DISORDER [None]
  - LUNG DISORDER [None]
  - MENISCUS LESION [None]
  - VENTRICULAR EXTRASYSTOLES [None]
  - APPENDIX DISORDER [None]
